FAERS Safety Report 8170491-1 (Version None)
Quarter: 2012Q1

REPORT INFORMATION
  Report Type: 
  Country: None (occurrence: None)
  Receive Date: 20120228
  Receipt Date: 20120215
  Transmission Date: 20120608
  Serious: Yes (Hospitalization)
  Sender: FDA-Public Use
  Company Number: AR-AMGEN-ARGSP2012007343

PATIENT
  Age: 82 Year
  Sex: Female
  Weight: 64 kg

DRUGS (6)
  1. ALPRAZOLAM [Concomitant]
     Dosage: 1 MG, UNK
  2. ENALAPRIL MALEATE [Concomitant]
     Dosage: 10 MG, UNK
  3. OMEPRAZOLE [Concomitant]
     Dosage: 20 MG, UNK
  4. VITAMIN D [Concomitant]
  5. CORTICOSTEROIDS [Concomitant]
     Dosage: 8 MG, 1X/DAY
  6. ENBREL [Suspect]
     Indication: RHEUMATOID ARTHRITIS
     Dosage: UNK

REACTIONS (3)
  - INFECTED SKIN ULCER [None]
  - NODULE [None]
  - PYREXIA [None]
